FAERS Safety Report 4870972-X (Version None)
Quarter: 2005Q4

REPORT INFORMATION
  Report Type: 
  Country: None (occurrence: None)
  Receive Date: 20051229
  Receipt Date: 20051219
  Transmission Date: 20060501
  Serious: Yes (Hospitalization)
  Sender: FDA-Public Use
  Company Number: JP200512002385

PATIENT
  Age: 4 Year
  Sex: Male

DRUGS (4)
  1. CEFACLOR [Suspect]
     Indication: GASTROENTERITIS
     Dosage: 300 MG, UNK, ORAL
     Route: 048
     Dates: start: 20051128, end: 20051128
  2. CEFDINIR [Concomitant]
  3. PRIMPERAN TAB [Concomitant]
  4. PERIACTIN [Concomitant]

REACTIONS (4)
  - FALSE POSITIVE LABORATORY RESULT [None]
  - HAEMOLYSIS [None]
  - PALLOR [None]
  - TREMOR [None]
